FAERS Safety Report 6215125-8 (Version None)
Quarter: 2009Q2

REPORT INFORMATION
  Report Type: 
  Country: None (occurrence: None)
  Receive Date: 20090604
  Receipt Date: 20090526
  Transmission Date: 20091009
  Serious: Yes (Other)
  Sender: FDA-Public Use
  Company Number: IE-JNJFOC-20090506495

PATIENT
  Sex: Female

DRUGS (3)
  1. REMICADE [Suspect]
     Indication: BECKER'S MUSCULAR DYSTROPHY
     Route: 042
  2. DELTACORTRIL [Concomitant]
  3. COLCHICINE [Concomitant]

REACTIONS (5)
  - ABDOMINAL PAIN [None]
  - DIZZINESS [None]
  - DYSPNOEA [None]
  - HOT FLUSH [None]
  - INFUSION RELATED REACTION [None]
